FAERS Safety Report 20219457 (Version 1)
Quarter: 2021Q4

REPORT INFORMATION
  Report Type: Spontaneous
  Country: US (occurrence: None)
  Receive Date: 20211222
  Receipt Date: 20211222
  Transmission Date: 20220303
  Serious: No
  Sender: FDA-Public Use
  Company Number: None

PATIENT
  Age: 66 Year
  Sex: Male
  Weight: 90 kg

DRUGS (13)
  1. SUTAB [Suspect]
     Active Substance: MAGNESIUM SULFATE\POTASSIUM CHLORIDE\SODIUM SULFATE
     Indication: Bowel preparation
     Dosage: OTHER QUANTITY : 24 TABLET(S);?OTHER FREQUENCY : 6:00PM + 5:00 AM;?
     Route: 048
     Dates: start: 20211221, end: 20211222
  2. GLIPIZIDE [Concomitant]
     Active Substance: GLIPIZIDE
  3. CYMBALTA [Concomitant]
     Active Substance: DULOXETINE HYDROCHLORIDE
  4. ATARAX [Concomitant]
     Active Substance: HYDROXYZINE HYDROCHLORIDE
  5. TAMSULOSIN [Concomitant]
     Active Substance: TAMSULOSIN
  6. CARVEDILOL [Concomitant]
     Active Substance: CARVEDILOL
  7. JARDIANCE [Concomitant]
     Active Substance: EMPAGLIFLOZIN
  8. PRAVASTATIN [Concomitant]
     Active Substance: PRAVASTATIN
  9. DUTASTERIDE [Concomitant]
     Active Substance: DUTASTERIDE
  10. VITAMIN D [Concomitant]
     Active Substance: VITAMIN D NOS
  11. VITAMINS [Concomitant]
     Active Substance: VITAMINS
  12. MAGNESIUM [Concomitant]
     Active Substance: MAGNESIUM
  13. VITAMIN B COMPLEX [Concomitant]
     Active Substance: CYANOCOBALAMIN\DEXPANTHENOL\NIACINAMIDE\PYRIDOXINE HYDROCHLORIDE\RIBOFLAVIN 5^-PHOSPHATE SODIUM\THIA

REACTIONS (2)
  - Product complaint [None]
  - Drug ineffective [None]

NARRATIVE: CASE EVENT DATE: 20211222
